FAERS Safety Report 14174167 (Version 2)
Quarter: 2017Q4

REPORT INFORMATION
  Report Type: Spontaneous
  Country: ES (occurrence: ES)
  Receive Date: 20171109
  Receipt Date: 20171117
  Transmission Date: 20180321
  Serious: Yes (Other)
  Sender: FDA-Public Use
  Company Number: ES-PFIZER INC-2017476370

PATIENT
  Age: 56 Year
  Sex: Female

DRUGS (1)
  1. SALAZOPYRINA [Suspect]
     Active Substance: SULFASALAZINE
     Dosage: 2 G, 1X/DAY
     Route: 048
     Dates: start: 20150608, end: 20170321

REACTIONS (1)
  - Immunoglobulins decreased [Recovering/Resolving]

NARRATIVE: CASE EVENT DATE: 20170126
